FAERS Safety Report 9988655 (Version 1)
Quarter: 2014Q1

REPORT INFORMATION
  Report Type: Spontaneous
  Country: DE (occurrence: DE)
  Receive Date: 20140310
  Receipt Date: 20140310
  Transmission Date: 20141002
  Serious: Yes (Congenital Anomaly, Other)
  Sender: FDA-Public Use
  Company Number: DE-DRREDDYS-GER/GER/14/0038640

PATIENT
  Age: 1 Day
  Sex: Male
  Weight: 3.71 kg

DRUGS (3)
  1. PANTOPRAZOLE [Suspect]
     Indication: PRODUCT USED FOR UNKNOWN INDICATION
     Route: 064
     Dates: start: 20120718, end: 20130409
  2. AZATHIOPRINE [Suspect]
     Indication: PRODUCT USED FOR UNKNOWN INDICATION
     Route: 064
     Dates: start: 20120718, end: 20130409
  3. MEDIVITAN [Concomitant]
     Indication: PRODUCT USED FOR UNKNOWN INDICATION
     Route: 064
     Dates: start: 20120718, end: 20130409

REACTIONS (7)
  - Atrial septal defect [Not Recovered/Not Resolved]
  - Hydrocele [Unknown]
  - Cardiac septal hypertrophy [Recovered/Resolved]
  - Dilatation ventricular [Recovering/Resolving]
  - Dilatation atrial [Recovering/Resolving]
  - Foetal heart rate deceleration abnormality [Unknown]
  - Foetal exposure during pregnancy [Unknown]
